FAERS Safety Report 13820085 (Version 1)
Quarter: 2017Q3

REPORT INFORMATION
  Report Type: Spontaneous
  Country: US (occurrence: US)
  Receive Date: 20170801
  Receipt Date: 20170801
  Transmission Date: 20171127
  Serious: Yes (Hospitalization)
  Sender: FDA-Public Use
  Company Number: None

PATIENT
  Age: 57 Year
  Sex: Female
  Weight: 67.5 kg

DRUGS (4)
  1. NITROFURANTOIN MONOHYDRATE MACROCRYSTALS [Suspect]
     Active Substance: NITROFURANTOIN\NITROFURANTOIN MONOHYDRATE
     Indication: URINARY TRACT INFECTION
     Dosage: ?          QUANTITY:1 CAPSULE(S);?
     Route: 048
     Dates: start: 20170730, end: 20170730
  2. VITAMIN D3 [Concomitant]
     Active Substance: CHOLECALCIFEROL
  3. VITAMIN C [Concomitant]
     Active Substance: ASCORBIC ACID
  4. CHEWABLE MULTI-VITAMIN [Concomitant]

REACTIONS (8)
  - Disorientation [None]
  - Vomiting [None]
  - Tinnitus [None]
  - Lethargy [None]
  - Paraesthesia [None]
  - Diarrhoea [None]
  - Hypoaesthesia [None]
  - Visual impairment [None]

NARRATIVE: CASE EVENT DATE: 20170730
